FAERS Safety Report 16371353 (Version 1)
Quarter: 2019Q3

REPORT INFORMATION
  Report Type: Spontaneous
  Country: US (occurrence: US)
  Receive Date: 20190529
  Receipt Date: 20190529
  Transmission Date: 20191004
  Serious: Yes (Hospitalization)
  Sender: FDA-Public Use
  Company Number: None

PATIENT
  Age: 64 Year
  Sex: Male
  Weight: 44 kg

DRUGS (1)
  1. TECENTRIQ [Suspect]
     Active Substance: ATEZOLIZUMAB
     Indication: SMALL CELL LUNG CANCER
     Dates: start: 20190403, end: 20190513

REACTIONS (6)
  - Pneumothorax [None]
  - Pneumonitis [None]
  - Pneumonia [None]
  - Pulmonary haemorrhage [None]
  - Pulmonary oedema [None]
  - Respiratory distress [None]

NARRATIVE: CASE EVENT DATE: 20190521
